FAERS Safety Report 4299503-2 (Version None)
Quarter: 2004Q1

REPORT INFORMATION
  Report Type: 
  Country: None (occurrence: None)
  Receive Date: 20040217
  Receipt Date: 20040206
  Transmission Date: 20041129
  Serious: Yes (Hospitalization)
  Sender: FDA-Public Use
  Company Number: 2004193459JP

PATIENT
  Age: 39 Year
  Sex: Male
  Weight: 101 kg

DRUGS (1)
  1. GENOTROPIN [Suspect]
     Indication: HYPOPITUITARISM
     Dosage: 0.2 MG, QD, SUBCUTANEOUS
     Route: 058
     Dates: start: 20040120

REACTIONS (4)
  - BRAIN NEOPLASM [None]
  - DEAFNESS UNILATERAL [None]
  - INTERVERTEBRAL DISC PROTRUSION [None]
  - SUDDEN HEARING LOSS [None]
